FAERS Safety Report 25281396 (Version 1)
Quarter: 2025Q2

REPORT INFORMATION
  Report Type: Spontaneous
  Country: US (occurrence: US)
  Receive Date: 20250508
  Receipt Date: 20250508
  Transmission Date: 20250717
  Serious: No
  Sender: CSL BEHRING
  Company Number: US-BEH-2025203942

PATIENT
  Sex: Female

DRUGS (4)
  1. HIZENTRA [Suspect]
     Active Substance: HUMAN IMMUNOGLOBULIN G
     Indication: Hypogammaglobulinaemia
     Dosage: 16 G, QW
     Route: 058
     Dates: start: 201702
  2. HIZENTRA [Suspect]
     Active Substance: HUMAN IMMUNOGLOBULIN G
     Indication: Immunodeficiency common variable
  3. EPINEPHRINE [Concomitant]
     Active Substance: EPINEPHRINE
  4. DUPIXENT [Concomitant]
     Active Substance: DUPILUMAB

REACTIONS (8)
  - Headache [Unknown]
  - Pain [Unknown]
  - Pruritus [Unknown]
  - Swelling [Unknown]
  - Illness [Unknown]
  - Malaise [Unknown]
  - Infection [Unknown]
  - Condition aggravated [Unknown]

NARRATIVE: CASE EVENT DATE: 20250101
